FAERS Safety Report 25006267 (Version 2)
Quarter: 2025Q2

REPORT INFORMATION
  Report Type: Spontaneous
  Country: US (occurrence: US)
  Receive Date: 20250224
  Receipt Date: 20250410
  Transmission Date: 20250717
  Serious: Yes (Other)
  Sender: BAUSCH AND LOMB
  Company Number: US-BAUSCHBL-2025BNL002768

PATIENT
  Age: 42 Year
  Sex: Female

DRUGS (1)
  1. BIOTRUE HYDRATION BOOST [Suspect]
     Active Substance: GLYCERIN
     Indication: Product used for unknown indication
     Route: 047

REACTIONS (5)
  - Corneal dystrophy [Unknown]
  - Product use complaint [Unknown]
  - Circumstance or information capable of leading to medication error [Unknown]
  - Product delivery mechanism issue [Unknown]
  - Patient dissatisfaction with treatment [Unknown]
